FAERS Safety Report 20988807 (Version 1)
Quarter: 2022Q2

REPORT INFORMATION
  Report Type: Spontaneous
  Country: CZ (occurrence: CZ)
  Receive Date: 20220621
  Receipt Date: 20220621
  Transmission Date: 20220720
  Serious: Yes (Hospitalization, Other)
  Sender: FDA-Public Use
  Company Number: CZ-PFIZER INC-PV202200003814

PATIENT
  Sex: Female

DRUGS (6)
  1. AXITINIB [Suspect]
     Active Substance: AXITINIB
     Indication: Metastatic renal cell carcinoma
     Dosage: 5 MG, 2X/DAY
     Dates: start: 202201
  2. AVELUMAB [Suspect]
     Active Substance: AVELUMAB
     Indication: Metastatic renal cell carcinoma
     Dosage: UNK
     Dates: start: 202201
  3. RAMIPRIL [Concomitant]
     Active Substance: RAMIPRIL
     Dosage: 10 MG, 1X/DAY, 1-0-0
  4. ORCAL [Concomitant]
     Dosage: 10 MG, 1X/DAY, 1-0-0
  5. LEVOTHYROXINE SODIUM [Concomitant]
     Active Substance: LEVOTHYROXINE SODIUM
     Dosage: 50 UG, 1X/DAY, 1-0-0
  6. STACYL [Concomitant]
     Dosage: 100 MG, 1X/DAY, 1-0-0

REACTIONS (4)
  - Liver disorder [Recovered/Resolved]
  - Immune-mediated hepatitis [Unknown]
  - Arthritis [Unknown]
  - Gait disturbance [Unknown]

NARRATIVE: CASE EVENT DATE: 20220301
